FAERS Safety Report 25986654 (Version 1)
Quarter: 2025Q4

REPORT INFORMATION
  Report Type: Spontaneous
  Country: US (occurrence: US)
  Receive Date: 20251031
  Receipt Date: 20251031
  Transmission Date: 20260118
  Serious: Yes (Other)
  Sender: BELOTECA, INC.
  Company Number: US-NATCOPHARMA-2025-US-048439

PATIENT

DRUGS (1)
  1. DIAZEPAM [Suspect]
     Active Substance: DIAZEPAM
     Indication: Product used for unknown indication
     Dosage: 2.5 MG IV PUSH
     Route: 042

REACTIONS (1)
  - Loss of consciousness [Unknown]
